FAERS Safety Report 17790423 (Version 1)
Quarter: 2020Q2

REPORT INFORMATION
  Report Type: Spontaneous
  Country: DE (occurrence: DE)
  Receive Date: 20200514
  Receipt Date: 20200514
  Transmission Date: 20200714
  Serious: Yes (Other)
  Sender: FDA-Public Use
  Company Number: DE-009507513-2005DEU002906

PATIENT
  Age: 29 Year
  Sex: Male

DRUGS (1)
  1. TEMODAL [Suspect]
     Active Substance: TEMOZOLOMIDE
     Indication: GLIOBLASTOMA
     Dosage: 200 MG FOR 5 DAYS FOLLOWED BY A PAUSE OF 3 WEEKS
     Route: 048
     Dates: start: 200002

REACTIONS (3)
  - Gastric disorder [Unknown]
  - Meningitis [Unknown]
  - Constipation [Unknown]

NARRATIVE: CASE EVENT DATE: 202004
